FAERS Safety Report 4376023-8 (Version None)
Quarter: 2004Q2

REPORT INFORMATION
  Report Type: 
  Country: None (occurrence: None)
  Receive Date: 20040607
  Receipt Date: 20040528
  Transmission Date: 20050107
  Serious: Yes (Life-Threatening)
  Sender: FDA-Public Use
  Company Number: 2003172620NL

PATIENT
  Age: 76 Year
  Sex: Male

DRUGS (3)
  1. ZYVOXID (LINEZOLID) SOLUTION, STERILE [Suspect]
     Indication: INFECTION
     Dosage: SEE IMAGE
     Route: 042
     Dates: start: 20030609, end: 20030620
  2. ZYVOXID (LINEZOLID) SOLUTION, STERILE [Suspect]
     Indication: INFECTION
     Dosage: SEE IMAGE
     Route: 042
     Dates: start: 20030623, end: 20030624
  3. . [Concomitant]

REACTIONS (3)
  - ANAPHYLACTIC SHOCK [None]
  - GASTROINTESTINAL DISORDER [None]
  - MYOCARDIAL INFARCTION [None]
